FAERS Safety Report 4667569-3 (Version None)
Quarter: 2005Q2

REPORT INFORMATION
  Report Type: 
  Country: None (occurrence: None)
  Receive Date: 20050520
  Receipt Date: 20050509
  Transmission Date: 20051028
  Serious: Yes (Hospitalization)
  Sender: FDA-Public Use
  Company Number: SG-BRISTOL-MYERS SQUIBB COMPANY-12972980

PATIENT
  Age: 41 Year
  Sex: Male

DRUGS (4)
  1. CETUXIMAB [Suspect]
     Indication: NON-SMALL CELL LUNG CANCER
     Dosage: 1ST INFUSION ADMINISTERED 01-FEB-2005.LAST ADMINISTERED 15-MAR-2005(7TH). 17-MAR-2005 DISCONTINUED.
     Route: 041
     Dates: start: 20050201, end: 20050315
  2. CETUXIMAB [Suspect]
     Route: 041
     Dates: start: 20050201, end: 20050315
  3. CISPLATIN [Suspect]
     Indication: NON-SMALL CELL LUNG CANCER
     Dosage: 1ST INFUSION ADMINISTERED 01-FEB-2005.LAST ADMINISTERED 15-MAR-2005(3RD). 17-MAR-2005 DISCONTINUED.
     Route: 042
     Dates: start: 20050201, end: 20050315
  4. VINORELBINE TARTRATE [Suspect]
     Indication: NON-SMALL CELL LUNG CANCER
     Dosage: 1ST INFUSION ADMINISTERED 01-FEB-2005.LAST ADMINISTERED 15-MAR-2005(5TH). 17-MAR-2005 DISCONTINUED.
     Route: 042
     Dates: start: 20050201, end: 20050315

REACTIONS (2)
  - HYPOTENSION [None]
  - SEPSIS [None]
